FAERS Safety Report 25498650 (Version 1)
Quarter: 2025Q3

REPORT INFORMATION
  Report Type: Spontaneous
  Country: US (occurrence: US)
  Receive Date: 20250701
  Receipt Date: 20250701
  Transmission Date: 20251020
  Serious: No
  Sender: ELI LILLY AND COMPANY
  Company Number: US-ELI_LILLY_AND_COMPANY-US202506020014

PATIENT
  Age: 70 Year
  Sex: Female

DRUGS (7)
  1. ZEPBOUND [Suspect]
     Active Substance: TIRZEPATIDE
     Indication: Weight control
     Dosage: 2.5 MG, WEEKLY (1/W)
     Route: 065
     Dates: start: 20250616
  2. CLONAZEPAM [Concomitant]
     Active Substance: CLONAZEPAM
     Indication: Anxiety
  3. GABAPENTIN [Concomitant]
     Active Substance: GABAPENTIN
     Indication: Anxiety
     Dosage: 300 MG, DAILY (AT NIGHT )
  4. BENADRYL [Concomitant]
     Active Substance: DIPHENHYDRAMINE HYDROCHLORIDE
     Indication: Hypersensitivity
  5. LOSARTAN [Concomitant]
     Active Substance: LOSARTAN
     Indication: Blood pressure increased
  6. LOSARTAN [Concomitant]
     Active Substance: LOSARTAN
  7. LOSARTAN [Concomitant]
     Active Substance: LOSARTAN

REACTIONS (10)
  - Extra dose administered [Unknown]
  - Pain [Unknown]
  - Headache [Unknown]
  - Insomnia [Unknown]
  - Muscle tightness [Unknown]
  - Heart rate increased [Unknown]
  - Abdominal distension [Unknown]
  - Fatigue [Recovered/Resolved]
  - Constipation [Unknown]
  - Diarrhoea [Recovered/Resolved]

NARRATIVE: CASE EVENT DATE: 20250601
